FAERS Safety Report 6676428-6 (Version None)
Quarter: 2010Q2

REPORT INFORMATION
  Report Type: 
  Country: None (occurrence: None)
  Receive Date: 20100412
  Receipt Date: 20100331
  Transmission Date: 20101027
  Serious: Yes (Hospitalization)
  Sender: FDA-Public Use
  Company Number: PHHY2010BR20210

PATIENT
  Age: 74 Year
  Sex: Female

DRUGS (9)
  1. ACLASTA [Suspect]
     Indication: OSTEOPOROSIS
     Dosage: 5 MG ONE INFUSION PER YEAR
     Route: 042
     Dates: start: 20071101
  2. ACLASTA [Suspect]
     Dosage: 5 MG ONE INFUSION PER YEAR
     Route: 042
     Dates: start: 20081101
  3. ACLASTA [Suspect]
     Dosage: 5 MG ONE INFUSION PER YEAR
     Route: 042
     Dates: start: 20091101
  4. ASPIRIN [Concomitant]
     Indication: CARDIOVASCULAR EVENT PROPHYLAXIS
     Dosage: 1 TABLET DAILY
     Route: 048
  5. FUROSEMIDE [Concomitant]
     Indication: CARDIAC DISORDER
     Dosage: 1 TABLET DAILY
     Route: 048
  6. SERTRALINE HCL [Concomitant]
     Indication: GASTROINTESTINAL DISORDER
     Dosage: 1 TABLET DAILY
     Route: 048
  7. CRESTOR [Concomitant]
     Dosage: 1 TABLET DAILY
     Route: 048
  8. SOTALOL HCL [Concomitant]
     Indication: CARDIAC DISORDER
     Dosage: 1 TABLET DAILY
     Route: 048
  9. OMEPRAZOLE [Concomitant]
     Indication: GASTROINTESTINAL DISORDER
     Dosage: 1 TABLET DAILY
     Route: 048

REACTIONS (5)
  - CORONARY ARTERIAL STENT INSERTION [None]
  - CORONARY ARTERY OCCLUSION [None]
  - DYSPNOEA [None]
  - HAEMORRHAGE [None]
  - HEART RATE INCREASED [None]
